FAERS Safety Report 9908154 (Version 1)
Quarter: 2014Q1

REPORT INFORMATION
  Report Type: Spontaneous
  Country: US (occurrence: None)
  Receive Date: 20140212
  Receipt Date: 20140212
  Transmission Date: 20141002
  Serious: Yes (Other)
  Sender: FDA-Public Use
  Company Number: None

PATIENT
  Age: 39 None
  Sex: Female

DRUGS (5)
  1. DOXYCYCLINE MONOHYDRATE [Suspect]
     Indication: ACNE
     Dosage: 1 CAPSULE 2X DAILY
     Route: 048
     Dates: start: 20131110, end: 20131114
  2. SEROQUEL 50 MG [Concomitant]
  3. VALIUM 2.5 MG [Concomitant]
  4. VIT D [Concomitant]
  5. MULTIVIT [Concomitant]

REACTIONS (4)
  - Sleep disorder [None]
  - Aphagia [None]
  - Throat irritation [None]
  - Vasodilatation [None]
